FAERS Safety Report 20700273 (Version 1)
Quarter: 2022Q2

REPORT INFORMATION
  Report Type: Spontaneous
  Country: FR (occurrence: FR)
  Receive Date: 20220412
  Receipt Date: 20220412
  Transmission Date: 20220721
  Serious: Yes (Hospitalization)
  Sender: FDA-Public Use
  Company Number: None

PATIENT
  Age: 74 Year
  Sex: Male
  Weight: 102 kg

DRUGS (5)
  1. RITUXIMAB [Suspect]
     Active Substance: RITUXIMAB
     Indication: Mantle cell lymphoma
     Dosage: CYCLIC
     Route: 041
     Dates: start: 20211216, end: 20220227
  2. DOXORUBICIN HYDROCHLORIDE [Suspect]
     Active Substance: DOXORUBICIN HYDROCHLORIDE
     Indication: Mantle cell lymphoma
     Dosage: CYCLIC
     Route: 041
     Dates: start: 20211216, end: 20220227
  3. VINCRISTINE SULFATE [Suspect]
     Active Substance: VINCRISTINE SULFATE
     Indication: Mantle cell lymphoma
     Dosage: CYCLIC
     Route: 041
     Dates: start: 20211216, end: 20220227
  4. CYCLOPHOSPHAMIDE [Suspect]
     Active Substance: CYCLOPHOSPHAMIDE
     Indication: Mantle cell lymphoma
     Dosage: CYCLIC
     Route: 041
     Dates: start: 20211216, end: 20220227
  5. FILGRASTIM [Suspect]
     Active Substance: FILGRASTIM
     Indication: Bone marrow failure
     Dosage: 1 DF, 1X/DAY
     Route: 042
     Dates: start: 20220303, end: 20220305

REACTIONS (4)
  - Myalgia [Recovered/Resolved]
  - Multisystem inflammatory syndrome [Recovered/Resolved]
  - Pyrexia [Recovered/Resolved]
  - Constipation [Recovered/Resolved]

NARRATIVE: CASE EVENT DATE: 20220306
